FAERS Safety Report 7133168-7 (Version None)
Quarter: 2010Q4

REPORT INFORMATION
  Report Type: 
  Country: None (occurrence: None)
  Receive Date: 20101117
  Receipt Date: 20101111
  Transmission Date: 20110411
  Serious: Yes (Hospitalization)
  Sender: FDA-Public Use
  Company Number: 2010SP004920

PATIENT
  Age: 19 Year
  Sex: Female
  Weight: 102.0593 kg

DRUGS (5)
  1. NUVARING [Suspect]
     Indication: CONTRACEPTION
     Dates: start: 20070701, end: 20080301
  2. PROPRANOLOL [Concomitant]
  3. DIAMOX [Concomitant]
  4. HYDROCODONE [Concomitant]
  5. XANAX [Concomitant]

REACTIONS (11)
  - ANXIETY [None]
  - BACK PAIN [None]
  - BONE DISORDER [None]
  - DEPRESSION [None]
  - HEADACHE [None]
  - INSOMNIA [None]
  - INTRACRANIAL PRESSURE INCREASED [None]
  - PULMONARY EMBOLISM [None]
  - SCHIZOPHRENIA SIMPLE [None]
  - URINARY TRACT INFECTION [None]
  - VITAMIN D DEFICIENCY [None]
